FAERS Safety Report 7078212-0 (Version None)
Quarter: 2010Q4

REPORT INFORMATION
  Report Type: 
  Country: None (occurrence: None)
  Receive Date: 20101101
  Receipt Date: 20101101
  Transmission Date: 20110411
  Serious: Yes (Hospitalization, Disabling)
  Sender: FDA-Public Use
  Company Number: None

PATIENT
  Sex: Male
  Weight: 90.7194 kg

DRUGS (4)
  1. VALPROIC ACID [Suspect]
     Indication: BIPOLAR I DISORDER
     Dosage: 250 MG ONCE A WEEK
     Dates: start: 20100909
  2. PROZAC [Suspect]
     Indication: ANXIETY
     Dosage: 250 MG ONCE A DAY
     Dates: start: 20100909
  3. PROZAC [Suspect]
     Indication: ATTENTION DEFICIT/HYPERACTIVITY DISORDER
     Dosage: 250 MG ONCE A DAY
     Dates: start: 20100909
  4. TRAZODONE HCL [Concomitant]

REACTIONS (9)
  - AMNESIA [None]
  - APPETITE DISORDER [None]
  - DEPRESSED MOOD [None]
  - DYSPNOEA [None]
  - HEART RATE IRREGULAR [None]
  - PANIC ATTACK [None]
  - SUICIDAL IDEATION [None]
  - THINKING ABNORMAL [None]
  - VOMITING [None]
